FAERS Safety Report 5444376-5 (Version None)
Quarter: 2007Q3

REPORT INFORMATION
  Report Type: 
  Country: None (occurrence: None)
  Receive Date: 20070904
  Receipt Date: 20070904
  Transmission Date: 20080115
  Serious: Yes (Hospitalization)
  Sender: FDA-Public Use
  Company Number: None

PATIENT
  Age: 50 Year
  Sex: Female
  Weight: 69 kg

DRUGS (4)
  1. IBUPROTEN 200 MG [Suspect]
     Indication: SINUSITIS
     Dosage: 6 TO 8 TABLETS PER DAY PO
     Route: 048
  2. SYNTHROID [Concomitant]
  3. NEXIUM [Concomitant]
  4. IMITREX [Concomitant]

REACTIONS (6)
  - BILIARY DYSKINESIA [None]
  - COMPUTERISED TOMOGRAM ABNORMAL [None]
  - GALLBLADDER DISORDER [None]
  - HEPATOBILIARY SCAN ABNORMAL [None]
  - JAUNDICE [None]
  - LIVER FUNCTION TEST NORMAL [None]
